FAERS Safety Report 13006290 (Version 1)
Quarter: 2016Q4

REPORT INFORMATION
  Report Type: Spontaneous
  Country: US (occurrence: US)
  Receive Date: 20161207
  Receipt Date: 20161207
  Transmission Date: 20170207
  Serious: No
  Sender: FDA-Public Use
  Company Number: US-PFIZER INC-2016561082

PATIENT

DRUGS (2)
  1. SKELAXIN [Suspect]
     Active Substance: METAXALONE
  2. RELPAX [Suspect]
     Active Substance: ELETRIPTAN HYDROBROMIDE

REACTIONS (2)
  - Road traffic accident [Unknown]
  - Muscle spasms [Unknown]
